FAERS Safety Report 5165455-6 (Version None)
Quarter: 2006Q4

REPORT INFORMATION
  Report Type: 
  Country: None (occurrence: None)
  Receive Date: 20061206
  Receipt Date: 20061129
  Transmission Date: 20070319
  Serious: Yes (Death, Other)
  Sender: FDA-Public Use
  Company Number: US-JNJFOC-20060904463

PATIENT
  Sex: Male
  Weight: 86.18 kg

DRUGS (8)
  1. REMICADE [Suspect]
     Dosage: TOTAL OF 24 INFUSIONS
  2. REMICADE [Suspect]
     Indication: RHEUMATOID ARTHRITIS
  3. PENICILLAMINE [Concomitant]
     Indication: RHEUMATOID ARTHRITIS
  4. NOPHEDAPINE [Concomitant]
     Indication: HYPERTENSION
  5. VICODIN [Concomitant]
  6. PREDNISONE TAB [Concomitant]
     Indication: RHEUMATOID ARTHRITIS
  7. METHOTREXATE [Concomitant]
     Indication: RHEUMATOID ARTHRITIS
  8. NAPROSYN [Concomitant]
     Indication: RHEUMATOID ARTHRITIS

REACTIONS (1)
  - HODGKIN'S DISEASE [None]
